FAERS Safety Report 9818595 (Version 1)
Quarter: 2014Q1

REPORT INFORMATION
  Report Type: Spontaneous
  Country: US (occurrence: US)
  Receive Date: 20140115
  Receipt Date: 20140115
  Transmission Date: 20141002
  Serious: No
  Sender: FDA-Public Use
  Company Number: US-009507513-1312USA010881

PATIENT
  Sex: Female

DRUGS (2)
  1. ZIOPTAN [Suspect]
     Route: 047
  2. COSOPT [Suspect]
     Route: 047

REACTIONS (4)
  - Abnormal sensation in eye [Unknown]
  - Eye pain [Unknown]
  - Eye pain [Unknown]
  - Ocular hyperaemia [Unknown]
